FAERS Safety Report 16379563 (Version 1)
Quarter: 2019Q2

REPORT INFORMATION
  Report Type: Spontaneous
  Country: CN (occurrence: CN)
  Receive Date: 20190531
  Receipt Date: 20190531
  Transmission Date: 20190711
  Serious: Yes (Other)
  Sender: FDA-Public Use
  Company Number: CN-ALLERGAN-1922356US

PATIENT
  Sex: Female

DRUGS (2)
  1. STEROID ANTIBACTERIALS [Concomitant]
     Active Substance: UNSPECIFIED INGREDIENT
     Indication: INFLAMMATION
     Dosage: UNK
     Route: 048
  2. OZURDEX [Suspect]
     Active Substance: DEXAMETHASONE
     Indication: VOGT-KOYANAGI-HARADA DISEASE
     Dosage: 0.7 MG, SINGLE
     Route: 031
     Dates: start: 20190112, end: 20190112

REACTIONS (2)
  - Vogt-Koyanagi-Harada disease [Unknown]
  - Off label use [Unknown]

NARRATIVE: CASE EVENT DATE: 20190402
